FAERS Safety Report 5033161-4 (Version None)
Quarter: 2006Q2

REPORT INFORMATION
  Report Type: 
  Country: None (occurrence: None)
  Receive Date: 20060511
  Receipt Date: 20060315
  Transmission Date: 20061013
  Serious: No
  Sender: FDA-Public Use
  Company Number: 200612538US

PATIENT

DRUGS (2)
  1. INSULIN GLULISINE (APIDRA) [Suspect]
  2. NOVOLOG [Concomitant]

REACTIONS (1)
  - DRUG INEFFECTIVE [None]
